FAERS Safety Report 8540502-X (Version None)
Quarter: 2012Q3

REPORT INFORMATION
  Report Type: 
  Country: None (occurrence: None)
  Receive Date: 20120726
  Receipt Date: 20110923
  Transmission Date: 20120928
  Serious: No
  Sender: FDA-Public Use
  Company Number: US-ASTRAZENECA-2011SE47010

PATIENT
  Age: 49 Year
  Sex: Male

DRUGS (6)
  1. DEPAKOTE [Concomitant]
  2. SEROQUEL [Suspect]
     Route: 048
  3. CELEXA [Concomitant]
  4. LITHIUM CARBONATE [Concomitant]
  5. SEROQUEL [Suspect]
     Indication: BIPOLAR DISORDER
     Route: 048
  6. CLONAZEPAM [Concomitant]

REACTIONS (7)
  - DIZZINESS [None]
  - SOMNOLENCE [None]
  - STRESS [None]
  - DYSPEPSIA [None]
  - FALL [None]
  - DRY MOUTH [None]
  - BIPOLAR DISORDER [None]
